FAERS Safety Report 6313873-2 (Version None)
Quarter: 2009Q3

REPORT INFORMATION
  Report Type: 
  Country: None (occurrence: None)
  Receive Date: 20090817
  Receipt Date: 20090817
  Transmission Date: 20100115
  Serious: Yes (Life-Threatening, Hospitalization)
  Sender: FDA-Public Use
  Company Number: None

PATIENT
  Age: 46 Year
  Sex: Female
  Weight: 99.7913 kg

DRUGS (2)
  1. TEGRETOL [Suspect]
     Indication: CONVULSION
     Dosage: 500 BID PO
     Route: 048
     Dates: start: 20050215, end: 20050220
  2. DEPAKOTE [Suspect]
     Indication: CONVULSION
     Dosage: 500 TID PO
     Route: 048
     Dates: start: 20050221, end: 20050226

REACTIONS (2)
  - BLOOD PRESSURE DECREASED [None]
  - CARDIAC ARREST [None]
